FAERS Safety Report 9280601 (Version 3)
Quarter: 2013Q2

REPORT INFORMATION
  Report Type: Spontaneous
  Country: US (occurrence: US)
  Receive Date: 20130509
  Receipt Date: 20130617
  Transmission Date: 20140414
  Serious: Yes (Other)
  Sender: FDA-Public Use
  Company Number: US-SANOFI-AVENTIS-2013SA046028

PATIENT
  Age: 58 Year
  Sex: Female
  Weight: 68.03 kg

DRUGS (5)
  1. AUBAGIO [Suspect]
     Indication: MULTIPLE SCLEROSIS
     Route: 048
     Dates: start: 20130325, end: 20130423
  2. SYNTHROID [Concomitant]
     Indication: HYPOTHYROIDISM
     Dates: start: 1980
  3. DEXIUM [Concomitant]
     Indication: GASTROOESOPHAGEAL REFLUX DISEASE
     Dates: start: 1990
  4. LASIX [Concomitant]
     Indication: HYPERTENSION
     Dosage: SINCE 20 YEARS
  5. ATENOLOL [Concomitant]
     Indication: HYPERTENSION
     Dates: start: 2006

REACTIONS (10)
  - Deafness bilateral [Recovered/Resolved]
  - Hypertension [Recovered/Resolved]
  - Chest pain [Recovered/Resolved]
  - Heart rate increased [Recovered/Resolved]
  - Vision blurred [Not Recovered/Not Resolved]
  - Tachycardia [Recovered/Resolved]
  - Hepatic enzyme increased [Recovered/Resolved]
  - Burning sensation [Unknown]
  - Hypoaesthesia oral [Recovered/Resolved]
  - Paraesthesia [Recovered/Resolved]
